FAERS Safety Report 6187638-9 (Version None)
Quarter: 2009Q2

REPORT INFORMATION
  Report Type: 
  Country: None (occurrence: None)
  Receive Date: 20090511
  Receipt Date: 20090505
  Transmission Date: 20091009
  Serious: Yes (Hospitalization)
  Sender: FDA-Public Use
  Company Number: 2009AL002821

PATIENT
  Age: 37 Year
  Sex: Male

DRUGS (1)
  1. PROPYLTHIOURACIL TAB [Suspect]
     Indication: BASEDOW'S DISEASE

REACTIONS (10)
  - ANTINEUTROPHIL CYTOPLASMIC ANTIBODY POSITIVE [None]
  - ANTINUCLEAR ANTIBODY POSITIVE [None]
  - BACK PAIN [None]
  - DYSPNOEA [None]
  - FATIGUE [None]
  - HAEMOPTYSIS [None]
  - NORMOCHROMIC NORMOCYTIC ANAEMIA [None]
  - PULMONARY ALVEOLAR HAEMORRHAGE [None]
  - VASCULITIS [None]
  - WEIGHT DECREASED [None]
